FAERS Safety Report 13255603 (Version 1)
Quarter: 2017Q1

REPORT INFORMATION
  Report Type: Spontaneous
  Country: ZA (occurrence: ZA)
  Receive Date: 20170221
  Receipt Date: 20170221
  Transmission Date: 20170428
  Serious: Yes (Hospitalization, Other)
  Sender: FDA-Public Use
  Company Number: ZA-009507513-1702ZAF005525

PATIENT
  Sex: Female

DRUGS (2)
  1. ESMERON [Suspect]
     Active Substance: ROCURONIUM BROMIDE
     Indication: ANAESTHESIA
     Dosage: 40 MG, UNK
     Dates: start: 20170207
  2. BRIDION [Suspect]
     Active Substance: SUGAMMADEX
     Dosage: 400 MG (2 AMPS) 5 MINS AFTER ESMERON, UNK
     Dates: start: 20170207

REACTIONS (4)
  - Hypotension [Unknown]
  - Bronchospasm [Unknown]
  - Drug hypersensitivity [Unknown]
  - Anaphylactic reaction [Unknown]

NARRATIVE: CASE EVENT DATE: 201702
